FAERS Safety Report 9643714 (Version 1)
Quarter: 2013Q4

REPORT INFORMATION
  Report Type: Report from Study
  Country: US (occurrence: US)
  Receive Date: 20131024
  Receipt Date: 20131024
  Transmission Date: 20140711
  Serious: Yes (Hospitalization, Other)
  Sender: FDA-Public Use
  Company Number: US-ABBVIE-13P-163-1158390-00

PATIENT
  Sex: Female

DRUGS (14)
  1. HUMIRA [Suspect]
     Indication: RHEUMATOID ARTHRITIS
     Route: 058
     Dates: start: 2010, end: 201210
  2. ATENOLOL [Concomitant]
     Indication: HYPERTENSION
  3. SIMVASTATIN [Concomitant]
     Indication: BLOOD CHOLESTEROL INCREASED
  4. GABAPENTIN [Concomitant]
     Indication: PAIN IN EXTREMITY
  5. BACLOFEN [Concomitant]
     Indication: MUSCLE SPASMS
  6. FLUTICASONE PROPIONATE [Concomitant]
     Indication: SEASONAL ALLERGY
  7. NITROSTAT [Concomitant]
     Indication: CHEST PAIN
  8. CALCIUM [Concomitant]
     Indication: MINERAL SUPPLEMENTATION
  9. ASPIRIN [Concomitant]
     Indication: ANTICOAGULANT THERAPY
  10. ISOSORBIDE MONONITRATE [Concomitant]
     Indication: CHEST PAIN
  11. BEANO [Concomitant]
     Indication: FLATULENCE
  12. CHLORDIAZEPOXIDE [Concomitant]
     Indication: DEPRESSION
  13. PANTOPRAZOLE SODIUM [Concomitant]
     Indication: GASTROOESOPHAGEAL REFLUX DISEASE
  14. ZOLPIDEM TARTRATE [Concomitant]
     Indication: DEPRESSION

REACTIONS (4)
  - Arthralgia [Unknown]
  - Rheumatoid arthritis [Recovered/Resolved]
  - Rheumatoid arthritis [Unknown]
  - Arthralgia [Not Recovered/Not Resolved]
